FAERS Safety Report 10137816 (Version 2)
Quarter: 2015Q1

REPORT INFORMATION
  Report Type: Other
  Country: US (occurrence: US)
  Receive Date: 20140429
  Receipt Date: 20150217
  Transmission Date: 20150720
  Serious: Yes (Death, Hospitalization, Other)
  Sender: FDA-Public Use
  Company Number: US-GSKPPD-2014GSK038978

PATIENT
  Age: 63 Year
  Sex: Female

DRUGS (3)
  1. AVANDIA [Suspect]
     Active Substance: ROSIGLITAZONE MALEATE
     Indication: DIABETES MELLITUS
     Dosage: AVANDIA WAS NOT LISTED AMONG THE PATIENTS RECORDS REVIEWED.
     Route: 048
  2. PLENDIL [Concomitant]
     Active Substance: FELODIPINE
  3. HYDROCHLOROTHIAZIDE. [Concomitant]
     Active Substance: HYDROCHLOROTHIAZIDE

REACTIONS (3)
  - Acute coronary syndrome [Recovered/Resolved]
  - Acute myocardial infarction [Not Recovered/Not Resolved]
  - Cardiogenic shock [Fatal]

NARRATIVE: CASE EVENT DATE: 20080419
